FAERS Safety Report 16062138 (Version 3)
Quarter: 2019Q1

REPORT INFORMATION
  Report Type: Spontaneous
  Country: BR (occurrence: BR)
  Receive Date: 20190312
  Receipt Date: 20190315
  Transmission Date: 20190418
  Serious: Yes (Death)
  Sender: FDA-Public Use
  Company Number: BR-ROCHE-2280946

PATIENT
  Age: 64 Year
  Sex: Male
  Weight: 78 kg

DRUGS (1)
  1. ACTILYSE [Suspect]
     Active Substance: ALTEPLASE
     Indication: MESENTERIC VEIN THROMBOSIS
     Dosage: AT 2.00
     Route: 042
     Dates: start: 20190125, end: 20190125

REACTIONS (3)
  - Septic shock [Fatal]
  - Off label use [Unknown]
  - Product use in unapproved indication [Unknown]

NARRATIVE: CASE EVENT DATE: 20190125
